FAERS Safety Report 21188815 (Version 6)
Quarter: 2025Q3

REPORT INFORMATION
  Report Type: Spontaneous
  Country: US (occurrence: US)
  Receive Date: 20220809
  Receipt Date: 20250922
  Transmission Date: 20251020
  Serious: Yes (Hospitalization, Other)
  Sender: AUROBINDO
  Company Number: US-AUROBINDO-AUR-APL-2022-030941

PATIENT
  Age: 69 Year
  Sex: Male

DRUGS (17)
  1. AZITHROMYCIN [Suspect]
     Active Substance: AZITHROMYCIN
     Indication: Respiratory tract infection
     Route: 065
  2. LEVOFLOXACIN [Suspect]
     Active Substance: LEVOFLOXACIN
     Indication: Cough
     Route: 065
  3. LEVOFLOXACIN [Suspect]
     Active Substance: LEVOFLOXACIN
     Indication: Antibiotic therapy
  4. PREDNISONE [Suspect]
     Active Substance: PREDNISONE
     Indication: Cough
     Route: 048
  5. PREDNISONE [Suspect]
     Active Substance: PREDNISONE
     Route: 065
  6. PREDNISONE [Suspect]
     Active Substance: PREDNISONE
     Route: 065
  7. VANCOMYCIN [Suspect]
     Active Substance: VANCOMYCIN
     Indication: Respiratory tract infection
     Route: 042
  8. CEFEPIME [Suspect]
     Active Substance: CEFEPIME HYDROCHLORIDE
     Indication: Respiratory tract infection
     Route: 065
  9. LACTOBACILLUS ACIDOPHILUS [Suspect]
     Active Substance: LACTOBACILLUS ACIDOPHILUS
     Indication: Colitis ulcerative
     Dosage: 550 MILLIGRAM, ONCE A DAY
     Route: 065
  10. LACTOBACILLUS ACIDOPHILUS [Suspect]
     Active Substance: LACTOBACILLUS ACIDOPHILUS
     Indication: Probiotic therapy
  11. PROBIOTICS NOS [Suspect]
     Active Substance: PROBIOTICS NOS
     Indication: Colitis ulcerative
     Route: 065
  12. PROBIOTICS NOS [Suspect]
     Active Substance: PROBIOTICS NOS
     Dosage: 500 MILLIGRAM, ONCE A DAY
     Route: 065
  13. LACTATED RINGERS SOLUTION [Concomitant]
     Active Substance: CALCIUM CHLORIDE\POTASSIUM CHLORIDE\SODIUM CHLORIDE\SODIUM LACTATE
     Indication: Respiratory tract infection
     Route: 065
  14. BALSALAZIDE [Concomitant]
     Active Substance: BALSALAZIDE
     Indication: Colitis ulcerative
     Dosage: 750 MILLIGRAM, TWO TIMES A DAY
     Route: 065
  15. BALSALAZIDE [Concomitant]
     Active Substance: BALSALAZIDE
     Dosage: ONCE A DAY
     Route: 065
  16. MIDODRINE [Concomitant]
     Active Substance: MIDODRINE
     Indication: Mean arterial pressure decreased
     Route: 065
  17. HYDROCORTISONE [Concomitant]
     Active Substance: HYDROCORTISONE
     Indication: Mean arterial pressure decreased
     Route: 065

REACTIONS (13)
  - Bacterial translocation [Recovered/Resolved]
  - Endocarditis [Recovered/Resolved]
  - Gastrointestinal bacterial infection [Recovered/Resolved]
  - Lactobacillus infection [Recovered/Resolved]
  - Prosthetic valve endocarditis [Recovered/Resolved]
  - Septic cerebral embolism [Recovered/Resolved]
  - Septic embolus [Recovered/Resolved]
  - Subacute endocarditis [Recovered/Resolved]
  - Septic shock [Recovered/Resolved]
  - Sepsis [Recovered/Resolved]
  - Bacterial sepsis [Unknown]
  - Lactobacillus bacteraemia [Recovered/Resolved]
  - Endocarditis bacterial [Unknown]
